FAERS Safety Report 6915421-2 (Version None)
Quarter: 2010Q3

REPORT INFORMATION
  Report Type: 
  Country: None (occurrence: None)
  Receive Date: 20100806
  Receipt Date: 20100806
  Transmission Date: 20110219
  Serious: Yes (Disabling)
  Sender: FDA-Public Use
  Company Number: None

PATIENT
  Age: 64 Year
  Sex: Female
  Weight: 56.4 kg

DRUGS (4)
  1. LEVAQUIN [Suspect]
     Indication: BRONCHITIS
     Dosage: 750MG TAB
     Dates: start: 20100208
  2. LEVAQUIN [Suspect]
     Indication: PNEUMONIA
     Dosage: 750MG TAB
     Dates: start: 20100208
  3. LEVAQUIN [Suspect]
     Indication: BRONCHITIS
     Dosage: 750MG TAB
     Dates: start: 20100413
  4. LEVAQUIN [Suspect]
     Indication: PNEUMONIA
     Dosage: 750MG TAB
     Dates: start: 20100413

REACTIONS (5)
  - ABDOMINAL PAIN UPPER [None]
  - INFLAMMATION [None]
  - MUSCLE SPASMS [None]
  - MUSCULOSKELETAL PAIN [None]
  - PAIN IN EXTREMITY [None]
